FAERS Safety Report 14902376 (Version 1)
Quarter: 2018Q2

REPORT INFORMATION
  Report Type: Spontaneous
  Country: BE (occurrence: BE)
  Receive Date: 20180516
  Receipt Date: 20180516
  Transmission Date: 20180711
  Serious: Yes (Other)
  Sender: FDA-Public Use
  Company Number: BE-JNJFOC-20180518612

PATIENT
  Age: 78 Year
  Sex: Female

DRUGS (1)
  1. XARELTO [Suspect]
     Active Substance: RIVAROXABAN
     Indication: CEREBRAL VENOUS THROMBOSIS
     Route: 048

REACTIONS (3)
  - Product use in unapproved indication [Unknown]
  - Pericarditis [Unknown]
  - Off label use [Unknown]
